FAERS Safety Report 5833650-6 (Version None)
Quarter: 2008Q3

REPORT INFORMATION
  Report Type: 
  Country: None (occurrence: None)
  Receive Date: 20080801
  Receipt Date: 20080725
  Transmission Date: 20090109
  Serious: Yes (Death)
  Sender: FDA-Public Use
  Company Number: 163-20785-08061391

PATIENT
  Age: 64 Year
  Sex: Male

DRUGS (1)
  1. THALOMID [Suspect]
     Indication: MULTIPLE MYELOMA
     Dosage: 150  MG, 3 IN 1 D,  ORAL
     Route: 048
     Dates: start: 20080124

REACTIONS (2)
  - RENAL FAILURE [None]
  - SEPTIC SHOCK [None]
